FAERS Safety Report 7246880-6 (Version None)
Quarter: 2011Q1

REPORT INFORMATION
  Report Type: 
  Country: None (occurrence: None)
  Receive Date: 20110127
  Receipt Date: 20110113
  Transmission Date: 20110831
  Serious: No
  Sender: FDA-Public Use
  Company Number: CA-ELI_LILLY_AND_COMPANY-CA201009007284

PATIENT
  Sex: Female
  Weight: 67 kg

DRUGS (10)
  1. ATORVASTATIN CALCIUM [Concomitant]
     Dosage: 200 MG, UNK
  2. TRAZODONE [Concomitant]
     Dosage: 50 MG, UNK
  3. HYDROMORPHONE [Concomitant]
     Dosage: 30 MG, DAILY (1/D)
  4. CALCIUM [Concomitant]
     Dosage: 1200 MG, UNK
  5. HYDROCHLOROTHIAZIDE [Concomitant]
     Dosage: 25 MG, UNK
  6. MELOXICAM [Concomitant]
     Dosage: 15 MG, UNK
  7. FORTEO [Suspect]
     Indication: OSTEOPOROSIS
     Dosage: 20 UG, DAILY (1/D)
     Route: 058
     Dates: start: 20090829
  8. ACCUPRIL [Concomitant]
     Dosage: 40 MG, UNK
  9. VITAMIN D [Concomitant]
     Dosage: 1200 IU, UNK
  10. NSAID'S [Concomitant]

REACTIONS (6)
  - VERTEBRAL FORAMINAL STENOSIS [None]
  - SPINAL OSTEOARTHRITIS [None]
  - ARTHROPATHY [None]
  - INTERVERTEBRAL DISC DISORDER [None]
  - SPINAL COLUMN STENOSIS [None]
  - SPINAL COMPRESSION FRACTURE [None]
